FAERS Safety Report 25437541 (Version 1)
Quarter: 2025Q2

REPORT INFORMATION
  Report Type: Spontaneous
  Country: JP (occurrence: JP)
  Receive Date: 20250616
  Receipt Date: 20250616
  Transmission Date: 20250716
  Serious: Yes (Hospitalization, Other)
  Sender: Haleon PLC
  Company Number: JP-002147023-NVSJ2025JP006119

PATIENT
  Age: 58 Year
  Sex: Female
  Weight: 47.5 kg

DRUGS (7)
  1. DICLOFENAC [Suspect]
     Active Substance: DICLOFENAC
     Indication: Pain
     Route: 048
     Dates: start: 20241129, end: 20241223
  2. DICLOFENAC [Suspect]
     Active Substance: DICLOFENAC
     Indication: Scoliosis
     Route: 048
     Dates: start: 202501, end: 202502
  3. DICLOFENAC [Suspect]
     Active Substance: DICLOFENAC
     Indication: Lumbar spinal stenosis
     Route: 048
     Dates: start: 202502, end: 20250322
  4. MIROGABALIN BESYLATE [Concomitant]
     Active Substance: MIROGABALIN BESYLATE
     Indication: Product used for unknown indication
     Route: 048
     Dates: start: 20241129, end: 20250322
  5. NEUROTROPIN [Concomitant]
     Active Substance: NEUROTROPIN
     Indication: Product used for unknown indication
     Route: 048
     Dates: start: 20241129, end: 20250322
  6. LOXOPROFEN SODIUM [Concomitant]
     Active Substance: LOXOPROFEN SODIUM
     Indication: Product used for unknown indication
     Route: 062
     Dates: start: 20241129, end: 20250322
  7. REBAMIPIDE [Concomitant]
     Active Substance: REBAMIPIDE
     Indication: Product used for unknown indication
     Route: 048
     Dates: start: 20241129, end: 20250322

REACTIONS (4)
  - Duodenal ulcer perforation [Recovered/Resolved]
  - Abdominal pain [Recovered/Resolved]
  - Abdominal pain upper [Recovered/Resolved]
  - Influenza [Unknown]

NARRATIVE: CASE EVENT DATE: 20241223
